FAERS Safety Report 9392117 (Version 6)
Quarter: 2015Q1

REPORT INFORMATION
  Report Type: Spontaneous
  Country: JP (occurrence: JP)
  Receive Date: 20130709
  Receipt Date: 20150318
  Transmission Date: 20150721
  Serious: Yes (Death, Life-Threatening, Other)
  Sender: FDA-Public Use
  Company Number: JP-ROCHE-1245872

PATIENT
  Age: 71 Year
  Sex: Female
  Weight: 54 kg

DRUGS (6)
  1. PREDONINE [Suspect]
     Active Substance: PREDNISOLONE\PREDNISOLONE ACETATE\PREDNISOLONE SODIUM SUCCINATE
     Indication: RHEUMATOID ARTHRITIS
     Route: 048
     Dates: end: 20120530
  2. VANCOMYCIN HYDROCHLORIDE. [Suspect]
     Active Substance: VANCOMYCIN HYDROCHLORIDE
     Indication: STAPHYLOCOCCAL INFECTION
     Dosage: DOSAGE IS UNCERTAIN.
     Route: 065
  3. ACLARUBICIN HYDROCHLORIDE [Suspect]
     Active Substance: ACLARUBICIN HYDROCHLORIDE
     Indication: ACUTE MYELOID LEUKAEMIA
     Dosage: DOSAGE IS UNCERTAIN.
     Route: 042
     Dates: start: 2012, end: 2012
  4. ACTEMRA [Suspect]
     Active Substance: TOCILIZUMAB
     Indication: RHEUMATOID ARTHRITIS
     Route: 041
     Dates: start: 201006, end: 201203
  5. GRAN [Suspect]
     Active Substance: FILGRASTIM
     Indication: ACUTE MYELOID LEUKAEMIA
     Dosage: DOSAGE IS UNCERTAIN.
     Route: 065
     Dates: start: 2012, end: 2012
  6. CYLOCIDE [Suspect]
     Active Substance: CYTARABINE
     Indication: ACUTE MYELOID LEUKAEMIA
     Dosage: DOSAGE IS UNCERTAIN.
     Route: 065
     Dates: start: 2012, end: 2012

REACTIONS (13)
  - Haemorrhoids [Not Recovered/Not Resolved]
  - Proctalgia [Unknown]
  - Diarrhoea [Unknown]
  - Acute monocytic leukaemia [Not Recovered/Not Resolved]
  - Depressed level of consciousness [Unknown]
  - Abdominal rigidity [Unknown]
  - Enterococcal infection [Unknown]
  - Abdominal tenderness [Unknown]
  - Multi-organ failure [Fatal]
  - Febrile neutropenia [Unknown]
  - Fungaemia [Fatal]
  - Pneumonia [Not Recovered/Not Resolved]
  - Agranulocytosis [Not Recovered/Not Resolved]

NARRATIVE: CASE EVENT DATE: 2012
